FAERS Safety Report 9689185 (Version 1)
Quarter: 2013Q4

REPORT INFORMATION
  Report Type: Spontaneous
  Country: HU (occurrence: HU)
  Receive Date: 20131114
  Receipt Date: 20131114
  Transmission Date: 20140711
  Serious: Yes (Other)
  Sender: FDA-Public Use
  Company Number: HU-UCBSA-102979

PATIENT
  Sex: Female

DRUGS (8)
  1. CIMZIA [Suspect]
     Indication: RHEUMATOID ARTHRITIS
     Route: 058
     Dates: start: 201209, end: 201306
  2. RANTUDIN [Concomitant]
     Route: 048
     Dates: start: 2011
  3. TRAMADOL [Concomitant]
     Dates: start: 2011
  4. BIZOBLOCK [Concomitant]
  5. LIZONIRIN [Concomitant]
  6. OMEPRAZOL [Concomitant]
     Dates: start: 2011
  7. FORTEDOL [Concomitant]
  8. NEBIFLON [Concomitant]
     Dates: start: 2011

REACTIONS (1)
  - Breast neoplasm [Recovering/Resolving]
